FAERS Safety Report 15413343 (Version 1)
Quarter: 2018Q3

REPORT INFORMATION
  Report Type: Spontaneous
  Country: JP (occurrence: JP)
  Receive Date: 20180921
  Receipt Date: 20180921
  Transmission Date: 20181010
  Serious: Yes (Congenital Anomaly)
  Sender: FDA-Public Use
  Company Number: JP-FERRINGPH-2018FE02945

PATIENT

DRUGS (2)
  1. ESTRANA [Concomitant]
     Active Substance: ESTRADIOL
     Indication: IN VITRO FERTILISATION
     Dosage: 2.16 MG, UNK
     Route: 064
     Dates: start: 20150323, end: 20150525
  2. LUTINUS [Suspect]
     Active Substance: PROGESTERONE
     Indication: IN VITRO FERTILISATION
     Dosage: 100 MG 3 TIMES DAILY
     Route: 064
     Dates: start: 20150408, end: 20150525

REACTIONS (1)
  - Ventricular septal defect [Recovered/Resolved]

NARRATIVE: CASE EVENT DATE: 20151231
